FAERS Safety Report 16164565 (Version 1)
Quarter: 2019Q2

REPORT INFORMATION
  Report Type: Spontaneous
  Country: FR (occurrence: FR)
  Receive Date: 20190405
  Receipt Date: 20190405
  Transmission Date: 20190711
  Serious: Yes (Death)
  Sender: FDA-Public Use
  Company Number: FR-ALLERGAN-1914703US

PATIENT
  Sex: Female

DRUGS (18)
  1. IPRATROPIUM BROMIDE. [Concomitant]
     Active Substance: IPRATROPIUM BROMIDE
  2. BUDESONIDE. [Concomitant]
     Active Substance: BUDESONIDE
  3. IBUPROFEN. [Concomitant]
     Active Substance: IBUPROFEN
  4. BACLOFEN. [Concomitant]
     Active Substance: BACLOFEN
  5. GENTAMICIN. [Concomitant]
     Active Substance: GENTAMICIN
  6. CLONIDINE. [Suspect]
     Active Substance: CLONIDINE
     Indication: PRODUCT USED FOR UNKNOWN INDICATION
     Route: 065
  7. BOTOX [Suspect]
     Active Substance: ONABOTULINUMTOXINA
     Indication: CEREBRAL PALSY
     Dosage: UNK, SINGLE
     Route: 030
  8. RANITIDINE. [Concomitant]
     Active Substance: RANITIDINE
  9. GABAPENTIN. [Concomitant]
     Active Substance: GABAPENTIN
  10. TRANXENE [Concomitant]
     Active Substance: CLORAZEPATE DIPOTASSIUM
  11. VALPROIC ACID. [Concomitant]
     Active Substance: VALPROIC ACID
  12. DIAZEPAM. [Suspect]
     Active Substance: DIAZEPAM
     Indication: PRODUCT USED FOR UNKNOWN INDICATION
     Route: 065
  13. LEVETIRACETAM. [Concomitant]
     Active Substance: LEVETIRACETAM
  14. LEVALBUTEROL. [Concomitant]
     Active Substance: LEVALBUTEROL
  15. METOCLOPRAMIDE. [Concomitant]
     Active Substance: METOCLOPRAMIDE
  16. CETIRIZINE HYDROCHLORIDE. [Suspect]
     Active Substance: CETIRIZINE HYDROCHLORIDE
     Indication: PRODUCT USED FOR UNKNOWN INDICATION
     Dosage: UNK
     Route: 065
  17. ACETAMINOPHEN. [Concomitant]
     Active Substance: ACETAMINOPHEN
  18. LACTULOSE. [Concomitant]
     Active Substance: LACTULOSE

REACTIONS (4)
  - Seizure [Fatal]
  - Pneumonia [Fatal]
  - Off label use [Unknown]
  - Muscular weakness [Fatal]
